APPROVED DRUG PRODUCT: VALACYCLOVIR HYDROCHLORIDE
Active Ingredient: VALACYCLOVIR HYDROCHLORIDE
Strength: EQ 1GM BASE
Dosage Form/Route: TABLET;ORAL
Application: A090370 | Product #002
Applicant: WATSON LABORATORIES INC
Approved: Mar 16, 2011 | RLD: No | RS: No | Type: DISCN